FAERS Safety Report 21753213 (Version 3)
Quarter: 2023Q1

REPORT INFORMATION
  Report Type: Spontaneous
  Country: ES (occurrence: ES)
  Receive Date: 20221220
  Receipt Date: 20230113
  Transmission Date: 20230418
  Serious: Yes (Hospitalization)
  Sender: FDA-Public Use
  Company Number: ES-AMAROX PHARMA GMBH-AMR2022ES02996

PATIENT
  Age: 87 Year
  Sex: Female

DRUGS (1)
  1. LOSARTAN POTASSIUM [Suspect]
     Active Substance: LOSARTAN POTASSIUM
     Dosage: 50 MG EVERY DAY
     Route: 048

REACTIONS (1)
  - Gastrointestinal disorder [Recovered/Resolved]
